FAERS Safety Report 23674824 (Version 1)
Quarter: 2024Q1

REPORT INFORMATION
  Report Type: Spontaneous
  Country: US (occurrence: US)
  Receive Date: 20240326
  Receipt Date: 20240326
  Transmission Date: 20240410
  Serious: Yes (Other)
  Sender: FDA-Public Use
  Company Number: US-ABBVIE-5648073

PATIENT
  Age: 65 Year
  Sex: Female
  Weight: 138 kg

DRUGS (2)
  1. REFRESH OPTIVE GEL DROPS [Suspect]
     Active Substance: CARBOXYMETHYLCELLULOSE SODIUM\GLYCERIN
     Indication: Dry eye
     Dosage: 33 FL OZ, FREQUENCY: ONE TIME IN EACH EYE, STRENGTH: CMC 10MG/ML, GLYCERIN 9MG/ML
     Route: 047
     Dates: start: 20240218, end: 20240229
  2. REFRESH OPTIVE GEL DROPS [Suspect]
     Active Substance: CARBOXYMETHYLCELLULOSE SODIUM\GLYCERIN
     Indication: Dry eye
     Dosage: 33 FL OZ, STRENGTH: CMC 10MG/ML, GLYCERIN 9MG/ML
     Route: 047
     Dates: start: 20240217

REACTIONS (3)
  - Eye discharge [Recovered/Resolved]
  - Lacrimation increased [Recovered/Resolved]
  - Eye irritation [Recovered/Resolved]

NARRATIVE: CASE EVENT DATE: 20240218
